FAERS Safety Report 8710423 (Version 2)
Quarter: 2013Q2

REPORT INFORMATION
  Report Type: Spontaneous
  Country: US (occurrence: US)
  Receive Date: 20120807
  Receipt Date: 20130521
  Transmission Date: 20140414
  Serious: No
  Sender: FDA-Public Use
  Company Number: US-009507513-1206USA03370

PATIENT
  Age: 1 Year
  Sex: Male

DRUGS (2)
  1. SINGULAIR [Suspect]
     Indication: COUGH
     Dosage: 5 MG, QD
     Route: 048
     Dates: start: 20120618, end: 20120618
  2. NASONEX [Concomitant]

REACTIONS (6)
  - Overdose [Unknown]
  - Sleep terror [Unknown]
  - Sleep disorder [Unknown]
  - Screaming [Unknown]
  - Crying [Unknown]
  - Hyperkinesia [Unknown]
